FAERS Safety Report 8364285-1 (Version None)
Quarter: 2012Q2

REPORT INFORMATION
  Report Type: 
  Country: None (occurrence: None)
  Receive Date: 20120516
  Receipt Date: 20120510
  Transmission Date: 20120825
  Serious: Yes (Death, Hospitalization, Other)
  Sender: FDA-Public Use
  Company Number: SE-ACTELION-A-CH2012-62913

PATIENT
  Sex: Male

DRUGS (7)
  1. SPIRONOLACTONE [Concomitant]
  2. REVATIO [Concomitant]
  3. ORAL ANTIDIABETICS [Concomitant]
  4. WARFARIN SODIUM [Concomitant]
  5. FUROSEMIDE [Concomitant]
  6. TRACLEER [Suspect]
     Indication: PULMONARY ARTERIAL HYPERTENSION
     Dosage: 62.5 MG, BID
     Route: 048
     Dates: start: 20120124, end: 20120210
  7. INSULIN [Concomitant]

REACTIONS (16)
  - BLOOD BILIRUBIN INCREASED [None]
  - CARDIAC FAILURE [None]
  - HEPATORENAL SYNDROME [None]
  - HEPATIC FAILURE [None]
  - RENAL FAILURE ACUTE [None]
  - ANGINA PECTORIS [None]
  - N-TERMINAL PROHORMONE BRAIN NATRIURETIC PEPTIDE INCREASED [None]
  - CHEST PAIN [None]
  - DEPRESSED LEVEL OF CONSCIOUSNESS [None]
  - JAUNDICE [None]
  - DYSPNOEA [None]
  - ALANINE AMINOTRANSFERASE INCREASED [None]
  - TROPONIN INCREASED [None]
  - ABDOMINAL TENDERNESS [None]
  - ASPARTATE AMINOTRANSFERASE INCREASED [None]
  - BLOOD ALKALINE PHOSPHATASE INCREASED [None]
